FAERS Safety Report 4767169-0 (Version None)
Quarter: 2005Q3

REPORT INFORMATION
  Report Type: 
  Country: None (occurrence: None)
  Receive Date: 20050909
  Receipt Date: 20050909
  Transmission Date: 20060218
  Serious: No
  Sender: FDA-Public Use
  Company Number: None

PATIENT
  Age: 62 Year
  Sex: Male
  Weight: 83.0083 kg

DRUGS (2)
  1. CYMBALTA [Suspect]
     Indication: DEPRESSION
     Dosage: 20MG W/ PLAN TITRATE TO 60MG DAILY PO
     Route: 048
     Dates: start: 20050823, end: 20050908
  2. CYMBALTA [Suspect]
     Indication: PAIN
     Dosage: 20MG W/ PLAN TITRATE TO 60MG DAILY PO
     Route: 048
     Dates: start: 20050823, end: 20050908

REACTIONS (1)
  - PSYCHOTIC DISORDER [None]
